FAERS Safety Report 9146732 (Version 1)
Quarter: 2013Q1

REPORT INFORMATION
  Report Type: Spontaneous
  Country: US (occurrence: None)
  Receive Date: 20130212
  Receipt Date: 20130212
  Transmission Date: 20140127
  Serious: Yes (Death, Hospitalization)
  Sender: FDA-Public Use
  Company Number: UTC-028127

PATIENT
  Age: 55 Year
  Sex: Male
  Weight: 80.9 kg

DRUGS (2)
  1. REMODULIN [Suspect]
     Indication: COR PULMONALE CHRONIC
     Route: 058
     Dates: start: 20120607
  2. ADCIRCA (TADALAFIL) [Concomitant]

REACTIONS (4)
  - Circulatory collapse [None]
  - Cardiopulmonary failure [None]
  - Pleural effusion [None]
  - Sepsis [None]
